FAERS Safety Report 24637007 (Version 1)
Quarter: 2024Q4

REPORT INFORMATION
  Report Type: Other
  Country: US (occurrence: US)
  Receive Date: 20241119
  Receipt Date: 20241119
  Transmission Date: 20250114
  Serious: Yes (Other)
  Sender: APPCO PHARMA LLC
  Company Number: US-Appco Pharma LLC-2165369

PATIENT
  Age: 73 Year
  Sex: Female

DRUGS (3)
  1. DOXYCYCLINE [Suspect]
     Active Substance: DOXYCYCLINE
     Indication: Pemphigoid
  2. NIACINAMIDE [Suspect]
     Active Substance: NIACINAMIDE
  3. PREDNISONE [Suspect]
     Active Substance: PREDNISONE

REACTIONS (3)
  - Gastric ulcer haemorrhage [Unknown]
  - Gastritis [Unknown]
  - Anaemia [Unknown]
